FAERS Safety Report 10461226 (Version 2)
Quarter: 2014Q3

REPORT INFORMATION
  Report Type: Spontaneous
  Country: US (occurrence: US)
  Receive Date: 20140918
  Receipt Date: 20140922
  Transmission Date: 20150326
  Serious: No
  Sender: FDA-Public Use
  Company Number: US-PFIZER INC-2014256394

PATIENT
  Age: 57 Year
  Sex: Male
  Weight: 82.09 kg

DRUGS (2)
  1. MIRALAX [Interacting]
     Active Substance: POLYETHYLENE GLYCOL 3350
     Indication: CONSTIPATION
     Dosage: UNK
  2. VIAGRA [Suspect]
     Active Substance: SILDENAFIL CITRATE
     Indication: ERECTILE DYSFUNCTION
     Dosage: 100 MG, AS NEEDED

REACTIONS (8)
  - Mood altered [Unknown]
  - Food interaction [Unknown]
  - Cyanopsia [Unknown]
  - Drug effect delayed [Unknown]
  - Suspected counterfeit product [Unknown]
  - Blood pressure decreased [Unknown]
  - Fatigue [Unknown]
  - Blood pressure increased [Unknown]

NARRATIVE: CASE EVENT DATE: 2014
